FAERS Safety Report 19895711 (Version 1)
Quarter: 2021Q3

REPORT INFORMATION
  Report Type: Spontaneous
  Country: US (occurrence: US)
  Receive Date: 20210928
  Receipt Date: 20210928
  Transmission Date: 20211014
  Serious: Yes (Hospitalization)
  Sender: FDA-Public Use
  Company Number: None

PATIENT
  Age: 5 Year
  Sex: Female
  Weight: 20.87 kg

DRUGS (5)
  1. ZOLOFT [Concomitant]
     Active Substance: SERTRALINE HYDROCHLORIDE
  2. MIRALAX [Suspect]
     Active Substance: POLYETHYLENE GLYCOL 3350
     Indication: CONSTIPATION
     Dosage: ?          QUANTITY:1 DF DOSAGE FORM;OTHER FREQUENCY:1?2X DAILY;?
     Route: 048
     Dates: start: 201909, end: 20210819
  3. MAGNESIUM LIQUID [Concomitant]
  4. PROBIOTIC (NATURAL) [Concomitant]
  5. CHILDRENS VITAMIN [Concomitant]

REACTIONS (6)
  - Product use issue [None]
  - Tic [None]
  - Aggression [None]
  - Fear [None]
  - Mood swings [None]
  - Phobia [None]

NARRATIVE: CASE EVENT DATE: 20210106
